FAERS Safety Report 11412612 (Version 2)
Quarter: 2015Q3

REPORT INFORMATION
  Report Type: Spontaneous
  Country: US (occurrence: US)
  Receive Date: 20150821
  Receipt Date: 20150903
  Transmission Date: 20151125
  Serious: No
  Sender: FDA-Public Use
  Company Number: US-ELI_LILLY_AND_COMPANY-US201205001668

PATIENT
  Age: 41 Year
  Sex: Female

DRUGS (5)
  1. HUMULIN R [Suspect]
     Active Substance: INSULIN HUMAN
     Indication: DIABETES MELLITUS
     Dosage: UNK
     Route: 058
     Dates: start: 2007
  2. HUMALOG [Suspect]
     Active Substance: INSULIN LISPRO
     Indication: DIABETES MELLITUS
     Dosage: 170 U, QD
     Route: 058
     Dates: start: 2000
  3. HUMULIN N [Suspect]
     Active Substance: INSULIN HUMAN
     Indication: DIABETES MELLITUS
     Dosage: UNK, EACH EVENING
  4. HUMULIN R [Suspect]
     Active Substance: INSULIN HUMAN
     Indication: DIABETES MELLITUS
     Route: 058
  5. NOVOLOG [Concomitant]
     Active Substance: INSULIN ASPART
     Dosage: UNK

REACTIONS (6)
  - Insulin resistance [Not Recovered/Not Resolved]
  - Weight fluctuation [Unknown]
  - Pruritus [Unknown]
  - Glycosylated haemoglobin increased [Unknown]
  - Hormone level abnormal [Unknown]
  - Feeling jittery [Unknown]
